FAERS Safety Report 10584658 (Version 1)
Quarter: 2014Q4

REPORT INFORMATION
  Report Type: Spontaneous
  Country: US (occurrence: US)
  Receive Date: 20141114
  Receipt Date: 20141114
  Transmission Date: 20150529
  Serious: No
  Sender: FDA-Public Use
  Company Number: US-BAYER-2014-168654

PATIENT
  Age: 73 Year
  Sex: Male
  Weight: 113.38 kg

DRUGS (2)
  1. ALEVE [Suspect]
     Active Substance: NAPROXEN SODIUM
     Indication: ARTHRITIS
     Dosage: 2 DF, QD
     Route: 048
     Dates: start: 2014
  2. ALEVE [Suspect]
     Active Substance: NAPROXEN SODIUM
     Indication: ARTHRITIS
     Dosage: 1-2 DF, IN THE MORNING WITH FOOD AND USUALLY TAKES ANOTHER IN THE EVENING AS NEEDED
     Route: 048
     Dates: start: 2013

REACTIONS (1)
  - Incorrect drug administration duration [Unknown]

NARRATIVE: CASE EVENT DATE: 2013
